FAERS Safety Report 24525323 (Version 6)
Quarter: 2025Q1

REPORT INFORMATION
  Report Type: Spontaneous
  Country: JP (occurrence: JP)
  Receive Date: 20241019
  Receipt Date: 20250225
  Transmission Date: 20250409
  Serious: Yes (Hospitalization, Other)
  Sender: UNITED THERAPEUTICS
  Company Number: JP-UNITED THERAPEUTICS-UNT-2024-033140

PATIENT
  Age: 63 Year
  Sex: Female

DRUGS (3)
  1. TYVASO [Suspect]
     Active Substance: TREPROSTINIL
     Indication: Pulmonary arterial hypertension
     Dosage: 18 ?G, QID (RESTARTED)
     Dates: start: 20241012, end: 20241021
  2. TYVASO [Suspect]
     Active Substance: TREPROSTINIL
     Dosage: 18 ?G, QID
     Dates: start: 202410
  3. TYVASO [Suspect]
     Active Substance: TREPROSTINIL

REACTIONS (5)
  - Pulmonary hypertension [Unknown]
  - Palpitations [Unknown]
  - Chest pain [Unknown]
  - Device malfunction [Unknown]
  - Device information output issue [Unknown]

NARRATIVE: CASE EVENT DATE: 20241001
